FAERS Safety Report 21451947 (Version 1)
Quarter: 2022Q4

REPORT INFORMATION
  Report Type: Spontaneous
  Country: US (occurrence: None)
  Receive Date: 20221012
  Receipt Date: 20221012
  Transmission Date: 20230113
  Serious: Yes (Death)
  Sender: FDA-Public Use
  Company Number: None

PATIENT
  Age: 64 Year
  Sex: Male
  Weight: 114.75 kg

DRUGS (5)
  1. KRYSTEXXA [Suspect]
     Active Substance: PEGLOTICASE
     Indication: Gout
     Dosage: OTHER FREQUENCY : EVERY 2 WEEKS;?
     Route: 042
     Dates: start: 20221010, end: 20221010
  2. KRYSTEXXA [Suspect]
     Active Substance: PEGLOTICASE
     Indication: Chronic disease
  3. KRYSTEXXA [Suspect]
     Active Substance: PEGLOTICASE
     Indication: Gouty tophus
  4. ALLOPURINOL [Concomitant]
     Active Substance: ALLOPURINOL
     Dates: end: 20221010
  5. Methotrexate 2.5 mg 4 tabs 1xweek [Concomitant]
     Dates: start: 20211001, end: 20221010

REACTIONS (1)
  - Product dose omission issue [None]

NARRATIVE: CASE EVENT DATE: 20221010
